FAERS Safety Report 14034352 (Version 1)
Quarter: 2017Q4

REPORT INFORMATION
  Report Type: Spontaneous
  Country: US (occurrence: US)
  Receive Date: 20171003
  Receipt Date: 20171003
  Transmission Date: 20180321
  Serious: Yes (Hospitalization, Other)
  Sender: FDA-Public Use
  Company Number: US-ELITE LABORATORIES INC.-2017ELT00014

PATIENT
  Age: 43 Year
  Sex: Female

DRUGS (2)
  1. PHENTERMINE. [Suspect]
     Active Substance: PHENTERMINE
     Indication: WEIGHT DECREASED
     Route: 065
  2. LEVOFLOXACIN. [Concomitant]
     Active Substance: LEVOFLOXACIN
     Indication: VIRAL UPPER RESPIRATORY TRACT INFECTION
     Route: 065

REACTIONS (3)
  - Subarachnoid haemorrhage [Recovered/Resolved]
  - Hypertension [Unknown]
  - Hydrocephalus [Recovered/Resolved]
